FAERS Safety Report 8175000-9 (Version None)
Quarter: 2012Q1

REPORT INFORMATION
  Report Type: 
  Country: None (occurrence: None)
  Receive Date: 20120229
  Receipt Date: 20120220
  Transmission Date: 20120608
  Serious: Yes (Other)
  Sender: FDA-Public Use
  Company Number: PHFR2011GB03085

PATIENT
  Sex: Female

DRUGS (1)
  1. CLOZARIL [Suspect]
     Dosage: 250 MG,
     Route: 048
     Dates: start: 20021011

REACTIONS (2)
  - HAEMOGLOBIN DECREASED [None]
  - METABOLIC DISORDER [None]
